FAERS Safety Report 14195890 (Version 1)
Quarter: 2017Q4

REPORT INFORMATION
  Report Type: Spontaneous
  Country: US (occurrence: US)
  Receive Date: 20171116
  Receipt Date: 20171116
  Transmission Date: 20180321
  Serious: No
  Sender: FDA-Public Use
  Company Number: US-BAUSCH-BL-2017-005238

PATIENT
  Age: 14 Year
  Sex: Female
  Weight: 44.5 kg

DRUGS (4)
  1. XENAZINE [Suspect]
     Active Substance: TETRABENAZINE
     Indication: ATAXIA
     Route: 065
     Dates: start: 20160816
  2. XENAZINE [Suspect]
     Active Substance: TETRABENAZINE
     Indication: TELANGIECTASIA
  3. TETRABENAZINE. [Suspect]
     Active Substance: TETRABENAZINE
     Indication: TELANGIECTASIA
  4. TETRABENAZINE. [Suspect]
     Active Substance: TETRABENAZINE
     Indication: ATAXIA
     Dosage: ONE-HALF TABLET ONCE DAILY
     Route: 048
     Dates: start: 201612

REACTIONS (5)
  - Tremor [Unknown]
  - Condition aggravated [Unknown]
  - Drug administration error [Unknown]
  - Movement disorder [Unknown]
  - Off label use [Unknown]

NARRATIVE: CASE EVENT DATE: 20160816
